FAERS Safety Report 8803263 (Version 1)
Quarter: 2012Q4

REPORT INFORMATION
  Report Type: Report from Study
  Country: CA (occurrence: CA)
  Receive Date: 20120924
  Receipt Date: 20120924
  Transmission Date: 20130627
  Serious: Yes (Other)
  Sender: FDA-Public Use
  Company Number: CA-JNJFOC-20120906493

PATIENT
  Age: 65 Year
  Sex: Female
  Weight: 68.04 kg

DRUGS (3)
  1. REMICADE [Suspect]
     Indication: CROHN^S DISEASE
     Route: 042
     Dates: start: 20120910, end: 20120910
  2. REMICADE [Suspect]
     Indication: CROHN^S DISEASE
     Route: 042
  3. BENADRYL [Concomitant]
     Dosage: 50 (units unspecified)
     Route: 042

REACTIONS (3)
  - Paraesthesia [Unknown]
  - Oedema peripheral [Unknown]
  - Pallor [Unknown]
